FAERS Safety Report 9290055 (Version 1)
Quarter: 2013Q2

REPORT INFORMATION
  Report Type: Spontaneous
  Country: ES (occurrence: None)
  Receive Date: 20130510
  Receipt Date: 20130510
  Transmission Date: 20140414
  Serious: Yes (Hospitalization)
  Sender: FDA-Public Use
  Company Number: 2013050016

PATIENT
  Age: 75 Year
  Sex: Male

DRUGS (2)
  1. TORASEMIDE [Suspect]
     Indication: PULMONARY HYPERTENSION
     Dosage: 5 MG, 1 IN 1 D) ORAL
     Route: 048
     Dates: start: 2013
  2. BESITRAN [Suspect]
     Indication: DEPRESSION
     Dosage: )5 MG 1 IN1D) ORAL
     Route: 048
     Dates: start: 2013, end: 20130312

REACTIONS (2)
  - Hyponatraemia [None]
  - Inappropriate antidiuretic hormone secretion [None]
